FAERS Safety Report 7763940-1 (Version None)
Quarter: 2011Q3

REPORT INFORMATION
  Report Type: 
  Country: None (occurrence: None)
  Receive Date: 20110921
  Receipt Date: 20110908
  Transmission Date: 20111222
  Serious: Yes (Other)
  Sender: FDA-Public Use
  Company Number: US-ACTELION-A-US2010-37514

PATIENT

DRUGS (3)
  1. TRACLEER [Suspect]
     Dosage: UNK MG, UNK
     Route: 048
     Dates: start: 20110216
  2. TRACLEER [Suspect]
     Indication: PULMONARY ARTERIAL HYPERTENSION
     Dosage: 62.5 MG, UNK
     Route: 048
     Dates: start: 20100419, end: 20100601
  3. ADCIRCA [Concomitant]

REACTIONS (5)
  - ULCER [None]
  - OEDEMA PERIPHERAL [None]
  - VASCULITIS [None]
  - RASH GENERALISED [None]
  - FLUID RETENTION [None]
